FAERS Safety Report 11101873 (Version 1)
Quarter: 2015Q2

REPORT INFORMATION
  Report Type: Spontaneous
  Country: US (occurrence: US)
  Receive Date: 20150510
  Receipt Date: 20150510
  Transmission Date: 20150821
  Serious: No
  Sender: FDA-Public Use
  Company Number: US-ASTRAZENECA-2015SE41093

PATIENT
  Age: 42 Year
  Sex: Female

DRUGS (2)
  1. PRILOSEC OTC [Suspect]
     Active Substance: OMEPRAZOLE MAGNESIUM
     Dosage: TOOK HALF TABLET FOR FIRST TIME
     Route: 048
     Dates: start: 20150428, end: 20150428
  2. CONTRACEPTIVES NOS [Concomitant]
     Active Substance: UNSPECIFIED INGREDIENT

REACTIONS (3)
  - Feeding disorder [Recovered/Resolved]
  - Hyperhidrosis [Not Recovered/Not Resolved]
  - Wrong technique in drug usage process [Unknown]

NARRATIVE: CASE EVENT DATE: 20150428
